FAERS Safety Report 4513412-2 (Version None)
Quarter: 2004Q4

REPORT INFORMATION
  Report Type: 
  Country: None (occurrence: None)
  Receive Date: 20041130
  Receipt Date: 20040922
  Transmission Date: 20050328
  Serious: No
  Sender: FDA-Public Use
  Company Number: US-BRISTOL-MYERS SQUIBB COMPANY-12709671

PATIENT
  Age: 49 Year
  Sex: Female
  Weight: 40 kg

DRUGS (3)
  1. ERBITUX [Suspect]
     Indication: COLORECTAL CANCER METASTATIC
     Route: 042
     Dates: start: 20040201
  2. CHEMOTHERAPY [Concomitant]
  3. OXYCONTIN [Concomitant]

REACTIONS (7)
  - DIARRHOEA [None]
  - DRY SKIN [None]
  - DRY THROAT [None]
  - FATIGUE [None]
  - NAUSEA [None]
  - ONYCHOMYCOSIS [None]
  - RASH [None]
